FAERS Safety Report 4330765-9 (Version None)
Quarter: 2004Q1

REPORT INFORMATION
  Report Type: 
  Country: None (occurrence: None)
  Receive Date: 20040331
  Receipt Date: 20040326
  Transmission Date: 20041129
  Serious: Yes (Other)
  Sender: FDA-Public Use
  Company Number: THQ2004A00310

PATIENT
  Age: 63 Year
  Sex: Female

DRUGS (5)
  1. LANSOPRAZOLE [Suspect]
     Indication: DYSPEPSIA
     Dosage: 15 MG (15 MG, 1 IN 1 AS REQUIRED); UNKNOWN
     Route: 065
     Dates: start: 20040213, end: 20040218
  2. ATENOLOL [Concomitant]
  3. BENDROFLUAZIDE (BENDROFLUMETHIAZIDE) [Concomitant]
  4. OMEGA-3 TRIGLYCERIDES [Concomitant]
  5. GAVISCON [Concomitant]

REACTIONS (3)
  - LETHARGY [None]
  - NAUSEA [None]
  - VISUAL DISTURBANCE [None]
